FAERS Safety Report 4314383-4 (Version None)
Quarter: 2004Q1

REPORT INFORMATION
  Report Type: 
  Country: None (occurrence: None)
  Receive Date: 20040308
  Receipt Date: 20040301
  Transmission Date: 20041129
  Serious: Yes (Other)
  Sender: FDA-Public Use
  Company Number: 2004-03-0168

PATIENT
  Age: 66 Year
  Sex: Female

DRUGS (2)
  1. ALBUTEROL SULFATE AUTOHALER [Suspect]
     Indication: ASTHMA
     Dosage: INHALATION
     Route: 045
  2. IPRATROPIUM BROMIDE [Suspect]
     Indication: ASTHMA
     Dosage: INHALATION
     Route: 045

REACTIONS (1)
  - ANGLE CLOSURE GLAUCOMA [None]
